FAERS Safety Report 9187555 (Version 1)
Quarter: 2013Q1

REPORT INFORMATION
  Report Type: Spontaneous
  Country: GB (occurrence: GB)
  Receive Date: 20130325
  Receipt Date: 20130325
  Transmission Date: 20140127
  Serious: Yes (Other)
  Sender: FDA-Public Use
  Company Number: GB-RANBAXY-2013R1-66526

PATIENT
  Age: 7 Year
  Sex: Male

DRUGS (1)
  1. AMOXICILLIN [Suspect]
     Indication: VIRAL INFECTION
     Dosage: 5 ML, TID
     Route: 065
     Dates: start: 20130131, end: 20130202

REACTIONS (9)
  - Dysuria [Recovering/Resolving]
  - Abnormal behaviour [Recovering/Resolving]
  - Agnosia [Recovering/Resolving]
  - Hallucination [Recovering/Resolving]
  - Psychomotor hyperactivity [Recovering/Resolving]
  - Sleep terror [Recovering/Resolving]
  - Screaming [Recovering/Resolving]
  - Infection [Recovering/Resolving]
  - Sleep disorder [Recovering/Resolving]
